FAERS Safety Report 4844779-3 (Version None)
Quarter: 2005Q4

REPORT INFORMATION
  Report Type: 
  Country: None (occurrence: None)
  Receive Date: 20051205
  Receipt Date: 20051108
  Transmission Date: 20060501
  Serious: Yes (Death, Hospitalization)
  Sender: FDA-Public Use
  Company Number: FR-BRISTOL-MYERS SQUIBB COMPANY-13183900

PATIENT
  Age: 76 Year
  Sex: Female

DRUGS (2)
  1. ERBITUX [Suspect]
     Indication: COLORECTAL CANCER
     Route: 042
     Dates: start: 20050823
  2. CAMPTOSAR [Suspect]
     Indication: COLORECTAL CANCER
     Route: 042
     Dates: start: 20050823

REACTIONS (1)
  - DERMATITIS BULLOUS [None]
